FAERS Safety Report 10538137 (Version 1)
Quarter: 2014Q4

REPORT INFORMATION
  Report Type: Spontaneous
  Country: BR (occurrence: BR)
  Receive Date: 20141023
  Receipt Date: 20141023
  Transmission Date: 20150529
  Serious: Yes (Hospitalization)
  Sender: FDA-Public Use
  Company Number: BR-PFIZER INC-2014288684

PATIENT
  Age: 88 Year
  Sex: Female
  Weight: 50 kg

DRUGS (9)
  1. NORVASC [Suspect]
     Active Substance: AMLODIPINE BESYLATE
     Indication: MYOCARDIAL ISCHAEMIA
     Dosage: ONE TABLET (10 MG), DAILY
     Route: 048
     Dates: start: 2012
  2. SELOKEN [Concomitant]
     Active Substance: METOPROLOL
     Indication: CARDIAC DISORDER
  3. SELOKEN [Concomitant]
     Active Substance: METOPROLOL
     Indication: BLOOD PRESSURE ABNORMAL
     Dosage: 1 TABLET (100MG), DAILY
     Dates: start: 20140917
  4. ARADOIS [Concomitant]
     Active Substance: LOSARTAN POTASSIUM
     Indication: BLOOD PRESSURE ABNORMAL
     Dosage: ONE TABLET (50 MG), DAILY
     Dates: start: 2004
  5. ANCORON [Concomitant]
     Active Substance: AMIODARONE HYDROCHLORIDE
     Indication: CARDIAC DISORDER
     Dosage: ONE TABLET (200 MG), DAILY
     Dates: start: 2004
  6. EUTHYROX [Concomitant]
     Active Substance: LEVOTHYROXINE SODIUM
     Indication: THYROID DISORDER
     Dosage: 1 TABLET (UNSPECIFIED DOSE), DAILY
     Dates: start: 2006
  7. HYDROCHLOROTHIAZIDE. [Concomitant]
     Active Substance: HYDROCHLOROTHIAZIDE
     Indication: BLOOD PRESSURE ABNORMAL
     Dosage: ONE TABLET (25 MG), DAILY
     Dates: start: 2009
  8. FOLIC ACID. [Concomitant]
     Active Substance: FOLIC ACID
     Indication: ANAEMIA
  9. OMEPRAZOLE. [Concomitant]
     Active Substance: OMEPRAZOLE
     Indication: GASTRIC DISORDER
     Dosage: 1 TABLET (UNSPECIFIED DOSE), DAILY
     Dates: start: 2009

REACTIONS (4)
  - Cardiomegaly [Unknown]
  - Anaemia [Unknown]
  - Gastrointestinal disorder [Unknown]
  - Pneumonia [Recovered/Resolved]
